FAERS Safety Report 6088414-8 (Version None)
Quarter: 2009Q1

REPORT INFORMATION
  Report Type: 
  Country: None (occurrence: None)
  Receive Date: 20090224
  Receipt Date: 20090212
  Transmission Date: 20090719
  Serious: Yes (Death)
  Sender: FDA-Public Use
  Company Number: AR-PFIZER INC-2008152828

PATIENT

DRUGS (4)
  1. GENOTROPIN [Suspect]
     Indication: GROWTH HORMONE DEFICIENCY
     Dosage: 10.5 IU, WEEKLY
     Dates: start: 20040121
  2. LEVOTHYROXINE [Concomitant]
  3. CARBAMAZEPINE [Concomitant]
  4. RISPERIDONE [Concomitant]

REACTIONS (1)
  - CSF SHUNT OPERATION [None]
